FAERS Safety Report 9208641 (Version 2)
Quarter: 2015Q2

REPORT INFORMATION
  Report Type: Spontaneous
  Country: US (occurrence: US)
  Receive Date: 20130404
  Receipt Date: 20150626
  Transmission Date: 20150821
  Serious: Yes (Other)
  Sender: FDA-Public Use
  Company Number: US-PFIZER INC-2013102022

PATIENT
  Age: 26 Year
  Sex: Female

DRUGS (3)
  1. CHLOROMYCETIN [Suspect]
     Active Substance: CHLORAMPHENICOL
     Dosage: 10 G, IN THE 12TH HOUR
     Route: 042
  2. CHLOROMYCETIN [Suspect]
     Active Substance: CHLORAMPHENICOL
     Dosage: 10 G, IN THE 7TH HOUR
     Route: 042
  3. CHLOROMYCETIN [Suspect]
     Active Substance: CHLORAMPHENICOL
     Dosage: INITIAL 1 G DOSE
     Route: 042

REACTIONS (6)
  - Coma [Recovered/Resolved]
  - Blood pressure decreased [Recovered/Resolved]
  - Cyanosis [Recovered/Resolved]
  - Product label confusion [Recovered/Resolved]
  - Shock [Recovered/Resolved]
  - Accidental overdose [Recovered/Resolved]
